FAERS Safety Report 6714424-0 (Version None)
Quarter: 2010Q2

REPORT INFORMATION
  Report Type: 
  Country: None (occurrence: None)
  Receive Date: 20100506
  Receipt Date: 20100426
  Transmission Date: 20101027
  Serious: Yes (Hospitalization, Other)
  Sender: FDA-Public Use
  Company Number: BR-ABBOTT-10P-020-0641163-00

PATIENT
  Sex: Female

DRUGS (8)
  1. HUMIRA [Suspect]
     Indication: RHEUMATOID ARTHRITIS
     Route: 058
     Dates: start: 20100225
  2. GLUCOSE, VITAMINS, MINERALS (SUPLAN) [Concomitant]
     Indication: HYPERTENSION
  3. GLUCOSE, VITAMINS, MINERALS (SUPLAN) [Concomitant]
     Indication: HEART RATE INCREASED
  4. MONOCORDIL [Concomitant]
     Indication: ANGINA PECTORIS
     Route: 048
  5. EFORTIL [Concomitant]
     Indication: HYPOTENSION
     Route: 048
     Dates: start: 20100421
  6. METHOTREXATE [Concomitant]
     Indication: RHEUMATOID ARTHRITIS
     Route: 058
  7. IBUPROFEN [Concomitant]
     Indication: PAIN
     Route: 048
  8. DIPYRONE [Concomitant]
     Indication: PAIN
     Route: 048

REACTIONS (16)
  - ABDOMINAL PAIN UPPER [None]
  - AMNESIA [None]
  - ANGINA PECTORIS [None]
  - ASTHENIA [None]
  - BLINDNESS [None]
  - BLOOD GLUCOSE DECREASED [None]
  - COLD SWEAT [None]
  - CONDITION AGGRAVATED [None]
  - DECREASED APPETITE [None]
  - DIZZINESS [None]
  - ERUCTATION [None]
  - FLATULENCE [None]
  - HYPERTENSION [None]
  - HYPOTENSION [None]
  - URINARY INCONTINENCE [None]
  - VOMITING [None]
